FAERS Safety Report 6760239-7 (Version None)
Quarter: 2010Q2

REPORT INFORMATION
  Report Type: 
  Country: None (occurrence: None)
  Receive Date: 20100608
  Receipt Date: 20010402
  Transmission Date: 20101027
  Serious: No
  Sender: FDA-Public Use
  Company Number: 2001SUS0304

PATIENT
  Age: 26 Year
  Sex: Female

DRUGS (4)
  1. SUSTIVA [Suspect]
     Indication: HIV INFECTION
     Dosage: 600 MG AES#DOSE_FREQUENCY: DLY
     Route: 048
     Dates: start: 20000630, end: 20000801
  2. ABACAVIR [Suspect]
     Indication: HIV INFECTION
     Dosage: 600 MG AES#DOSE_FREQUENCY: DLY
     Route: 048
     Dates: start: 20000714, end: 20000801
  3. LAMIVUDINE + ZIDOVUDINE [Suspect]
     Indication: HIV INFECTION
     Dosage: 2 DLY
     Route: 048
     Dates: start: 19991001
  4. NELFINAVIR [Suspect]
     Indication: HIV INFECTION
     Dosage: 2500 MG AES#DOSE_FREQUENCY: DLY
     Route: 048
     Dates: start: 19991001, end: 20000601

REACTIONS (2)
  - NORMAL NEWBORN [None]
  - PREGNANCY [None]
